FAERS Safety Report 7101196-3 (Version None)
Quarter: 2010Q4

REPORT INFORMATION
  Report Type: 
  Country: None (occurrence: None)
  Receive Date: 20101105
  Receipt Date: 20101022
  Transmission Date: 20110411
  Serious: Yes (Death)
  Sender: FDA-Public Use
  Company Number: AE 2010-341

PATIENT
  Age: 44 Year
  Sex: Male

DRUGS (14)
  1. FAZACLO ODT [Suspect]
     Indication: PRODUCT USED FOR UNKNOWN INDICATION
     Dosage: 300 - 900 MG DAILY PO
     Route: 048
     Dates: start: 20090427, end: 20100801
  2. CHLORPROMAZINE [Concomitant]
  3. DEPAKOTE [Concomitant]
  4. LITHIUM [Concomitant]
  5. ASPIRIN [Concomitant]
  6. PINDOLOL [Concomitant]
  7. POTASSIUM CHLORIDE [Concomitant]
  8. MULTI-VITAMIN [Concomitant]
  9. ZONEGRAN [Concomitant]
  10. ARICEPT [Concomitant]
  11. NAMENDA [Concomitant]
  12. REMERON [Concomitant]
  13. PREMARIN [Concomitant]
  14. LEXAPRO [Concomitant]

REACTIONS (1)
  - DEATH [None]
